FAERS Safety Report 14173517 (Version 14)
Quarter: 2020Q2

REPORT INFORMATION
  Report Type: Spontaneous
  Country: US (occurrence: US)
  Receive Date: 20171109
  Receipt Date: 20200422
  Transmission Date: 20200713
  Serious: Yes (Hospitalization, Other)
  Sender: FDA-Public Use
  Company Number: US-PFIZER INC-2017479956

PATIENT
  Age: 73 Year
  Sex: Male
  Weight: 102 kg

DRUGS (14)
  1. SUTENT [Suspect]
     Active Substance: SUNITINIB MALATE
     Dosage: 37.5 MG, DAILY
  2. SUTENT [Suspect]
     Active Substance: SUNITINIB MALATE
     Dosage: 37.5 MG, CYCLIC, (ONCE A DAY; 2 WEEKS ON, 1 WEEK OFF)
     Route: 048
  3. OMEPRAZOLE. [Concomitant]
     Active Substance: OMEPRAZOLE
     Dosage: 20 MG, 1X/DAY
     Route: 048
  4. LOSARTAN-HCTZ [Concomitant]
     Active Substance: HYDROCHLOROTHIAZIDE\LOSARTAN
     Indication: DIURETIC THERAPY
  5. SUTENT [Suspect]
     Active Substance: SUNITINIB MALATE
     Indication: METASTATIC RENAL CELL CARCINOMA
     Dosage: 50 MG, 1X/DAY
     Dates: start: 20170914, end: 20171006
  6. SUTENT [Suspect]
     Active Substance: SUNITINIB MALATE
     Dosage: 37.5 MG, CYCLIC [DAILY FOR 2 WEEKS THEN 1 WEEK OFF]
     Route: 048
  7. SUTENT [Suspect]
     Active Substance: SUNITINIB MALATE
     Dosage: UNK
     Dates: end: 201904
  8. LOSARTAN-HCTZ [Concomitant]
     Active Substance: HYDROCHLOROTHIAZIDE\LOSARTAN
     Indication: BLOOD PRESSURE INCREASED
     Dosage: UNK, 1X/DAY, [100MG HYDROCHLOROTHIAZIDE, 12.5MG LOSARTAN]
     Route: 048
  9. OMEPRAZOLE. [Concomitant]
     Active Substance: OMEPRAZOLE
     Indication: BARRETT^S OESOPHAGUS
     Dosage: 20 MG, 2X/DAY
     Route: 048
  10. ATORVASTATIN [Concomitant]
     Active Substance: ATORVASTATIN
     Indication: BLOOD CHOLESTEROL ABNORMAL
     Dosage: 40 MG, 1X/DAY
     Route: 048
  11. SUTENT [Suspect]
     Active Substance: SUNITINIB MALATE
     Dosage: 50 MG, 1X/DAY
     Dates: start: 201710, end: 201710
  12. SUTENT [Suspect]
     Active Substance: SUNITINIB MALATE
     Dosage: 37.5 MG, CYCLIC (DAILY FOR 2 WEEKS THEN 1 WEEK OFF)
     Dates: start: 2017, end: 2019
  13. SUTENT [Suspect]
     Active Substance: SUNITINIB MALATE
     Dosage: 37.5 MG, 1X/DAY
     Dates: start: 20171013
  14. SUTENT [Suspect]
     Active Substance: SUNITINIB MALATE
     Dosage: UNK

REACTIONS (32)
  - Liposarcoma [Not Recovered/Not Resolved]
  - Fatigue [Recovered/Resolved]
  - Palmar-plantar erythrodysaesthesia syndrome [Recovered/Resolved]
  - Nasal discomfort [Recovered/Resolved]
  - Decubitus ulcer [Recovering/Resolving]
  - Post procedural discomfort [Unknown]
  - Second primary malignancy [Unknown]
  - Staphylococcal skin infection [Recovered/Resolved]
  - Haematochezia [Recovered/Resolved]
  - Haemorrhage urinary tract [Unknown]
  - Rash [Not Recovered/Not Resolved]
  - Rectal haemorrhage [Recovered/Resolved]
  - Limb discomfort [Recovered/Resolved]
  - Abdominal discomfort [Recovered/Resolved]
  - Hypoacusis [Recovered/Resolved]
  - Dyspnoea [Unknown]
  - Heart rate decreased [Recovered/Resolved]
  - Hypertension [Recovered/Resolved]
  - Urticaria [Not Recovered/Not Resolved]
  - Diarrhoea [Recovered/Resolved]
  - Nausea [Recovered/Resolved]
  - Protein total decreased [Recovering/Resolving]
  - Pain in extremity [Recovered/Resolved]
  - Skin disorder [Recovering/Resolving]
  - Decreased appetite [Recovered/Resolved]
  - Taste disorder [Recovered/Resolved]
  - Squamous cell carcinoma [Unknown]
  - Haemorrhoidal haemorrhage [Recovered/Resolved]
  - Hyperkeratosis [Recovered/Resolved]
  - Haemoglobin decreased [Not Recovered/Not Resolved]
  - Epistaxis [Recovered/Resolved]
  - Gait disturbance [Unknown]

NARRATIVE: CASE EVENT DATE: 2017
